FAERS Safety Report 5290361-6 (Version None)
Quarter: 2007Q2

REPORT INFORMATION
  Report Type: 
  Country: None (occurrence: None)
  Receive Date: 20070409
  Receipt Date: 20070328
  Transmission Date: 20071010
  Serious: Yes (Other)
  Sender: FDA-Public Use
  Company Number: JP-AVENTIS-200712750GDDC

PATIENT
  Age: 56 Year
  Sex: Female

DRUGS (5)
  1. RIFADIN [Suspect]
     Route: 048
     Dates: start: 20060926, end: 20061005
  2. ISONIAZID [Suspect]
     Dates: start: 20060926, end: 20061005
  3. STREPTOMYCIN [Concomitant]
     Route: 030
     Dates: start: 20060926
  4. PYRAZINAMIDE [Concomitant]
     Route: 048
     Dates: start: 20060926, end: 20061005
  5. LEVOFLOXACIN [Concomitant]
     Route: 048
     Dates: start: 20061001

REACTIONS (1)
  - HEPATITIS FULMINANT [None]
